FAERS Safety Report 4394237-8 (Version None)
Quarter: 2004Q3

REPORT INFORMATION
  Report Type: 
  Country: None (occurrence: None)
  Receive Date: 20040707
  Receipt Date: 20040625
  Transmission Date: 20050211
  Serious: Yes (Hospitalization)
  Sender: FDA-Public Use
  Company Number: S04-USA-03711-01

PATIENT
  Age: 58 Year
  Sex: Male

DRUGS (5)
  1. CELEXA [Suspect]
     Indication: DEPRESSION
     Dosage: 20 MG QD PO
     Route: 048
     Dates: start: 20031224
  2. CELEXA [Suspect]
     Indication: DEPRESSION
     Dosage: 10 MG QD PO
     Route: 048
     Dates: start: 20031130, end: 20031223
  3. GEMFIBROZIL [Suspect]
     Indication: BLOOD TRIGLYCERIDES INCREASED
     Dosage: 600 MG BID
  4. SIMVASTATIN [Suspect]
     Indication: BLOOD CHOLESTEROL INCREASED
     Dosage: 40 MG QHS
     Dates: start: 20031130
  5. ALCOHOL [Suspect]

REACTIONS (7)
  - BLOOD POTASSIUM INCREASED [None]
  - DRUG INTERACTION [None]
  - PCO2 DECREASED [None]
  - PROTEIN URINE PRESENT [None]
  - RED BLOOD CELLS URINE POSITIVE [None]
  - RENAL FAILURE ACUTE [None]
  - RHABDOMYOLYSIS [None]
